FAERS Safety Report 7424989-1 (Version None)
Quarter: 2011Q2

REPORT INFORMATION
  Report Type: 
  Country: None (occurrence: None)
  Receive Date: 20110419
  Receipt Date: 20110328
  Transmission Date: 20111010
  Serious: Yes (Hospitalization)
  Sender: FDA-Public Use
  Company Number: US-BAYER-201011318NA

PATIENT
  Age: 30 Year
  Sex: Female

DRUGS (11)
  1. SPIRONOLACTONE [Concomitant]
     Indication: HIRSUTISM
     Dates: start: 20100101
  2. SPIRONOLACTONE [Concomitant]
     Indication: SUPPLEMENTATION THERAPY
  3. HERBAL PREPARATION [Concomitant]
  4. ONE-A-DAY [MINERALS NOS,VITAMINS NOS] [Concomitant]
     Dates: start: 20060101
  5. GLUCOPHAGE XR [Concomitant]
     Indication: DIABETES MELLITUS
  6. YASMIN [Suspect]
     Indication: POLYCYSTIC OVARIES
     Route: 048
     Dates: start: 20061106, end: 20070121
  7. YASMIN [Suspect]
     Indication: ORAL CONTRACEPTION
  8. ZOCOR [Concomitant]
     Indication: BLOOD CHOLESTEROL INCREASED
  9. DARVOCET-N 50 [Concomitant]
  10. IBUPROFEN [Concomitant]
  11. ONE-A-DAY [Concomitant]
     Indication: SUPPLEMENTATION THERAPY
     Dates: start: 20060101

REACTIONS (3)
  - CHEST PAIN [None]
  - PULMONARY EMBOLISM [None]
  - DYSPNOEA [None]
